FAERS Safety Report 4781333-6 (Version None)
Quarter: 2005Q3

REPORT INFORMATION
  Report Type: 
  Country: None (occurrence: None)
  Receive Date: 20050914
  Receipt Date: 20050727
  Transmission Date: 20060218
  Serious: No
  Sender: FDA-Public Use
  Company Number: IND-AE-05-SAN-047

PATIENT
  Age: 34 Year
  Sex: Female

DRUGS (1)
  1. SANCTURA [Suspect]

REACTIONS (1)
  - HEAT STROKE [None]
